FAERS Safety Report 24432007 (Version 1)
Quarter: 2024Q4

REPORT INFORMATION
  Report Type: Spontaneous
  Country: US (occurrence: US)
  Receive Date: 20241014
  Receipt Date: 20241014
  Transmission Date: 20250114
  Serious: No
  Sender: AMNEAL
  Company Number: US-AMNEAL PHARMACEUTICALS-2024-AMRX-01759

PATIENT
  Sex: Male

DRUGS (1)
  1. AZELASTINE HYDROCHLORIDE [Suspect]
     Active Substance: AZELASTINE HYDROCHLORIDE
     Indication: Product used for unknown indication
     Dosage: (1 MG/ML) 137 MCG PER SPRAY
     Route: 062

REACTIONS (4)
  - Product delivery mechanism issue [Unknown]
  - Wrong technique in device usage process [Unknown]
  - Product packaging quantity issue [Unknown]
  - No adverse event [Unknown]
